APPROVED DRUG PRODUCT: DOXYCYCLINE HYCLATE
Active Ingredient: DOXYCYCLINE HYCLATE
Strength: EQ 20MG BASE
Dosage Form/Route: TABLET;ORAL
Application: A065163 | Product #001
Applicant: HERITAGE PHARMA LABS INC
Approved: May 13, 2005 | RLD: No | RS: No | Type: DISCN